FAERS Safety Report 22925393 (Version 3)
Quarter: 2024Q3

REPORT INFORMATION
  Report Type: Report from Study
  Country: US (occurrence: None)
  Receive Date: 20230908
  Receipt Date: 20240816
  Transmission Date: 20241016
  Serious: Yes (Other)
  Sender: ASTRAZENECA
  Company Number: 2023A200664

PATIENT

DRUGS (1)
  1. BREZTRI [Suspect]
     Active Substance: BUDESONIDE\FORMOTEROL\GLYCOPYRROLATE
     Dosage: UNKNOWN
     Route: 055

REACTIONS (6)
  - Aphasia [Unknown]
  - Dyspnoea [Unknown]
  - Emphysema [Unknown]
  - Condition aggravated [Unknown]
  - Cough [Unknown]
  - Multiple allergies [Unknown]
